FAERS Safety Report 8183740-0 (Version None)
Quarter: 2012Q1

REPORT INFORMATION
  Report Type: 
  Country: None (occurrence: None)
  Receive Date: 20120305
  Receipt Date: 20120301
  Transmission Date: 20120608
  Serious: Yes (Death)
  Sender: FDA-Public Use
  Company Number: PHHY2011DE73268

PATIENT
  Sex: Male
  Weight: 52 kg

DRUGS (1)
  1. SANDOSTATIN LAR [Suspect]

REACTIONS (1)
  - DEATH [None]
